FAERS Safety Report 22902173 (Version 3)
Quarter: 2024Q1

REPORT INFORMATION
  Report Type: Spontaneous
  Country: JP (occurrence: JP)
  Receive Date: 20230904
  Receipt Date: 20240220
  Transmission Date: 20240410
  Serious: Yes (Hospitalization)
  Sender: FDA-Public Use
  Company Number: JP-DSJP-DSJ-2023-135561

PATIENT
  Age: 71 Year
  Sex: Male
  Weight: 82 kg

DRUGS (8)
  1. EDOXABAN TOSYLATE [Suspect]
     Active Substance: EDOXABAN TOSYLATE
     Indication: Deep vein thrombosis
     Dosage: 60 MG, QD, AFTER BREAKFAST
     Route: 048
     Dates: end: 2021
  2. EDOXABAN TOSYLATE [Suspect]
     Active Substance: EDOXABAN TOSYLATE
     Dosage: 60 MG, QD, AFTER BREAKFAST
     Route: 048
     Dates: start: 20211208
  3. OLMESARTAN MEDOXOMIL [Suspect]
     Active Substance: OLMESARTAN MEDOXOMIL
     Indication: Hypertension
     Dosage: 40 MG, QD, AFTER BREAKFAST
     Route: 048
  4. AMLODIPINE BESYLATE [Concomitant]
     Active Substance: AMLODIPINE BESYLATE
     Dosage: 5 MG, QD, AFTER BREAKFAST
     Route: 048
  5. EXTERNAL MEDICINE [Concomitant]
     Dosage: UNK
     Route: 065
  6. HERBALS [Concomitant]
     Active Substance: HERBALS
     Dosage: 5 G, TID, BEFORE BREAKFAST, LUNCH AND DINNER
     Route: 065
  7. MOSAPRIDE CITRATE DIHYDRATE [Concomitant]
     Active Substance: MOSAPRIDE CITRATE DIHYDRATE
     Dosage: 5 MG, TID, AFTER BREAKFAST, LUNCH AND DINNER
     Route: 065
  8. VONOPRAZAN FUMARATE [Concomitant]
     Active Substance: VONOPRAZAN FUMARATE
     Dosage: 10 MG, QD, BEFORE BEDTIME
     Route: 065

REACTIONS (3)
  - Mesenteric haematoma [Recovering/Resolving]
  - Intra-abdominal haemorrhage [Recovering/Resolving]
  - Gastrointestinal arteriovenous malformation [Recovered/Resolved]

NARRATIVE: CASE EVENT DATE: 20211101
